FAERS Safety Report 18693316 (Version 1)
Quarter: 2021Q1

REPORT INFORMATION
  Report Type: Spontaneous
  Country: US (occurrence: US)
  Receive Date: 20210104
  Receipt Date: 20210104
  Transmission Date: 20210419
  Serious: Yes (Other)
  Sender: FDA-Public Use
  Company Number: US-RECORDATI RARE DISEASES INC.-2020005375

PATIENT
  Age: 40 Year
  Sex: Male

DRUGS (1)
  1. UNSPECIFIED METHAMPHETAMINE [Suspect]
     Active Substance: METHAMPHETAMINE
     Indication: PRODUCT USED FOR UNKNOWN INDICATION
     Dosage: UNKNOWN
     Route: 065

REACTIONS (3)
  - Pseudomembranous colitis [Unknown]
  - Drug abuse [Unknown]
  - Colitis ischaemic [Unknown]
